FAERS Safety Report 8149496 (Version 5)
Quarter: 2013Q3

REPORT INFORMATION
  Report Type: Report from Study
  Country: US (occurrence: US)
  Receive Date: 20110922
  Receipt Date: 20130906
  Transmission Date: 20140515
  Serious: No
  Sender: FDA-Public Use
  Company Number: US-ASTRAZENECA-2011SE42061

PATIENT
  Age: 63 Year
  Sex: Female
  Weight: 59 kg

DRUGS (9)
  1. NEXIUM [Suspect]
     Indication: GASTROOESOPHAGEAL REFLUX DISEASE
     Route: 048
     Dates: start: 2011
  2. SEROQUEL [Suspect]
     Indication: SLEEP DISORDER
     Route: 048
     Dates: start: 2008
  3. SEROQUEL [Suspect]
     Indication: SLEEP DISORDER
     Route: 048
  4. CRESTOR [Suspect]
     Indication: LIPIDS INCREASED
     Route: 048
     Dates: start: 2010
  5. ZOMIG [Suspect]
     Indication: MIGRAINE
     Route: 048
  6. BACLOFEN [Concomitant]
  7. TRAZADONE [Concomitant]
  8. VALIUM [Concomitant]
     Indication: MUSCLE DISORDER
  9. TOPAMATE [Concomitant]

REACTIONS (8)
  - Gingival swelling [Unknown]
  - Nasopharyngitis [Unknown]
  - Dry mouth [Unknown]
  - Off label use [Unknown]
  - Drug dispensing error [Unknown]
  - Migraine [Unknown]
  - Dyskinesia [Unknown]
  - Denture wearer [Unknown]
